FAERS Safety Report 6335101-4 (Version None)
Quarter: 2009Q3

REPORT INFORMATION
  Report Type: 
  Country: None (occurrence: None)
  Receive Date: 20090826
  Receipt Date: 20090811
  Transmission Date: 20100115
  Serious: Yes (Life-Threatening)
  Sender: FDA-Public Use
  Company Number: 8047694

PATIENT
  Age: 59 Year
  Sex: Female
  Weight: 60.3 kg

DRUGS (6)
  1. CDP870 [Suspect]
     Indication: RHEUMATOID ARTHRITIS
     Dosage: 400 MG 1/2W SC
     Route: 058
     Dates: start: 20051228, end: 20060614
  2. CDP870 [Suspect]
     Indication: RHEUMATOID ARTHRITIS
     Dosage: 400 MG 1/2W SC
     Route: 058
     Dates: start: 20060614, end: 20090603
  3. METHOTREXATE [Concomitant]
  4. NIMESIL [Concomitant]
  5. FENIGIDINE [Concomitant]
  6. OMERIL [Concomitant]

REACTIONS (4)
  - COGNITIVE DISORDER [None]
  - DISSEMINATED TUBERCULOSIS [None]
  - MENINGITIS [None]
  - MENINGITIS TUBERCULOUS [None]
